FAERS Safety Report 20421607 (Version 2)
Quarter: 2022Q4

REPORT INFORMATION
  Report Type: Spontaneous
  Country: US (occurrence: US)
  Receive Date: 20220203
  Receipt Date: 20221007
  Transmission Date: 20230113
  Serious: Yes (Other)
  Sender: FDA-Public Use
  Company Number: US-PFIZER INC-202101549150

PATIENT
  Age: 82 Year
  Sex: Female

DRUGS (2)
  1. XELJANZ XR [Suspect]
     Active Substance: TOFACITINIB CITRATE
     Dosage: 11 MG
  2. VITAMINS [Suspect]
     Active Substance: VITAMINS
     Dosage: UNK

REACTIONS (3)
  - Thyroidectomy [Unknown]
  - Dizziness [Unknown]
  - Hypoacusis [Unknown]
